FAERS Safety Report 8397138-3 (Version None)
Quarter: 2012Q2

REPORT INFORMATION
  Report Type: 
  Country: None (occurrence: None)
  Receive Date: 20120530
  Receipt Date: 20120522
  Transmission Date: 20120825
  Serious: Yes (Death, Hospitalization, Other)
  Sender: FDA-Public Use
  Company Number: US-ROCHE-1016867

PATIENT
  Sex: Female
  Weight: 101.7 kg

DRUGS (13)
  1. MORPHINE SULFATE [Concomitant]
     Route: 048
  2. ZELBORAF [Suspect]
     Indication: MALIGNANT MELANOMA
     Route: 048
  3. ASPIRIN [Concomitant]
  4. SIMVASTATIN [Concomitant]
     Route: 048
  5. TEMODAR [Concomitant]
     Route: 048
  6. DUONEB [Concomitant]
     Dosage: INHALATION, 2.5 MG-0.5 MG/3 ML
  7. ALBUTEROL SULFATE [Concomitant]
  8. DETROL LA [Concomitant]
     Dosage: EXTENDED RELEASE, 1 DAILY
     Route: 048
  9. LIPITOR [Concomitant]
     Route: 048
  10. COUMADIN [Concomitant]
     Route: 048
  11. LOVAZA [Concomitant]
     Route: 048
  12. LOVENOX [Concomitant]
     Dosage: 80 MG/0.8 ML SOLUTION
  13. LISINOPRIL [Concomitant]
     Route: 048

REACTIONS (12)
  - SKIN LESION [None]
  - NEOPLASM [None]
  - NAUSEA [None]
  - DRY SKIN [None]
  - AGEUSIA [None]
  - ARTHRALGIA [None]
  - MELANOCYTIC NAEVUS [None]
  - RASH [None]
  - DEATH [None]
  - VISUAL IMPAIRMENT [None]
  - HEADACHE [None]
  - PRURITUS [None]
